FAERS Safety Report 4839228-5 (Version None)
Quarter: 2005Q4

REPORT INFORMATION
  Report Type: 
  Country: None (occurrence: None)
  Receive Date: 20051129
  Receipt Date: 20050913
  Transmission Date: 20060501
  Serious: Yes (Hospitalization)
  Sender: FDA-Public Use
  Company Number: FR-BRISTOL-MYERS SQUIBB COMPANY-13111323

PATIENT
  Age: 69 Year
  Sex: Female

DRUGS (5)
  1. COAPROVEL TABS 300MG/12.5MG [Suspect]
     Indication: HYPERTENSION
     Dosage: ^300 MG^
     Route: 048
     Dates: start: 20050719
  2. ICAZ [Concomitant]
     Route: 048
     Dates: start: 19980101
  3. LASILIX [Concomitant]
     Route: 048
     Dates: start: 19980101
  4. SERESTA [Concomitant]
     Route: 048
     Dates: start: 19980101
  5. ZESTRIL [Concomitant]
     Route: 048
     Dates: start: 19980101, end: 20050718

REACTIONS (2)
  - ANAPHYLACTIC SHOCK [None]
  - TOXIC EPIDERMAL NECROLYSIS [None]
